FAERS Safety Report 8035849-X (Version None)
Quarter: 2012Q1

REPORT INFORMATION
  Report Type: 
  Country: None (occurrence: None)
  Receive Date: 20120106
  Receipt Date: 20111222
  Transmission Date: 20120608
  Serious: Yes (Hospitalization)
  Sender: FDA-Public Use
  Company Number: 2011-000123

PATIENT
  Age: 69 Year
  Sex: Female

DRUGS (9)
  1. CALCICHEW D3 (CALCIUM CARBONATE, COLECALCIFEROL) [Suspect]
     Dates: start: 20071213
  2. CLEANAL (FUDOSTEINE) [Concomitant]
  3. ACTONEL [Suspect]
     Indication: OSTEOPOROSIS
     Dosage: 2.5 MG DAILY, ORAL
     Route: 048
     Dates: start: 20071213, end: 20111214
  4. ALL OTHER THERAPEUTIC PRODUCTS [Suspect]
     Dates: start: 20071213
  5. CALCIUM CARBONATE [Concomitant]
  6. ERGOCALCIFEROL [Concomitant]
  7. NINJIN-TO (ATRACTYLODES LANCEA RHIZOME, GINSENG NOS, GLYCYRRHIZA GLABR [Concomitant]
  8. HOKUNALIN /00654901/ (TULOBUTEROL) [Concomitant]
  9. CRESTOR [Concomitant]

REACTIONS (7)
  - NAUSEA [None]
  - CHILLS [None]
  - DIZZINESS [None]
  - ABDOMINAL DISCOMFORT [None]
  - FLATULENCE [None]
  - GASTROENTERITIS [None]
  - THIRST [None]
